FAERS Safety Report 6589872-2 (Version None)
Quarter: 2010Q1

REPORT INFORMATION
  Report Type: 
  Country: None (occurrence: None)
  Receive Date: 20100219
  Receipt Date: 20100211
  Transmission Date: 20100710
  Serious: Yes (Other)
  Sender: FDA-Public Use
  Company Number: AT-JNJFOC-20100206071

PATIENT
  Age: 56 Year
  Sex: Female

DRUGS (2)
  1. DITROPAN [Suspect]
     Indication: URINARY INCONTINENCE
     Route: 065
  2. MINIRIN [Concomitant]
     Indication: URINARY INCONTINENCE

REACTIONS (1)
  - ANAPHYLACTIC SHOCK [None]
